FAERS Safety Report 10407802 (Version 3)
Quarter: 2014Q3

REPORT INFORMATION
  Report Type: Report from Study
  Country: US (occurrence: US)
  Receive Date: 20140825
  Receipt Date: 20140910
  Transmission Date: 20150326
  Serious: No
  Sender: FDA-Public Use
  Company Number: US-ELI_LILLY_AND_COMPANY-US201408007869

PATIENT
  Age: 19 Year
  Sex: Male

DRUGS (2)
  1. TERIPARATIDE [Suspect]
     Active Substance: TERIPARATIDE
     Indication: OSTEOPOROSIS
     Dosage: UNK, QD
     Route: 065
     Dates: start: 20140804, end: 201408
  2. TERIPARATIDE [Suspect]
     Active Substance: TERIPARATIDE
     Indication: BONE DENSITY DECREASED

REACTIONS (3)
  - Tinnitus [Recovering/Resolving]
  - Ear pain [Unknown]
  - Osteopenia [Unknown]

NARRATIVE: CASE EVENT DATE: 20140804
